FAERS Safety Report 14084369 (Version 1)
Quarter: 2017Q4

REPORT INFORMATION
  Report Type: Report from Study
  Country: RU (occurrence: RU)
  Receive Date: 20171013
  Receipt Date: 20171013
  Transmission Date: 20180321
  Serious: Yes (Other)
  Sender: FDA-Public Use
  Company Number: PHHY2017RU150307

PATIENT
  Age: 78 Year
  Sex: Female

DRUGS (2)
  1. UPERIO [Suspect]
     Active Substance: SACUBITRIL\VALSARTAN
     Indication: CARDIAC FAILURE CHRONIC
     Dosage: 200 MG, BID
     Route: 065
  2. UPERIO [Suspect]
     Active Substance: SACUBITRIL\VALSARTAN
     Dosage: 100 MG, BID
     Route: 065

REACTIONS (7)
  - Hypoaesthesia [Unknown]
  - Asphyxia [Unknown]
  - Hepatic pain [Unknown]
  - Dizziness [Unknown]
  - Asthenia [Unknown]
  - Abdominal pain upper [Unknown]
  - Hypertension [Unknown]
